FAERS Safety Report 8406036-8 (Version None)
Quarter: 2012Q2

REPORT INFORMATION
  Report Type: 
  Country: None (occurrence: None)
  Receive Date: 20120529
  Receipt Date: 20060405
  Transmission Date: 20120825
  Serious: Yes (Death)
  Sender: FDA-Public Use
  Company Number: 15691-USA-06-1020

PATIENT
  Age: 59 Year
  Sex: Male

DRUGS (11)
  1. DIGOXIN [Concomitant]
  2. ACENOCOUMAROL [Concomitant]
  3. ASPIRIN [Concomitant]
  4. ENALAPRIL MALEATE [Concomitant]
  5. GLYBURIDE [Concomitant]
  6. TOLVAPTAN (TOLVAPTAN(V4.1)) 30 MG [Suspect]
     Indication: CARDIAC FAILURE CONGESTIVE
     Dosage: 30 MG, QD, ORAL
     Route: 048
     Dates: start: 20050323
  7. SPIRONOLACTONE [Concomitant]
  8. INSULIN [Concomitant]
  9. FUROSEMIDE [Concomitant]
  10. SIMVASTATIN [Concomitant]
  11. CARVEDILOL [Concomitant]

REACTIONS (1)
  - SUDDEN DEATH [None]
